FAERS Safety Report 4388088-8 (Version None)
Quarter: 2004Q2

REPORT INFORMATION
  Report Type: 
  Country: None (occurrence: None)
  Receive Date: 20040629
  Receipt Date: 20040629
  Transmission Date: 20050107
  Serious: Yes (Hospitalization)
  Sender: FDA-Public Use
  Company Number: None

PATIENT
  Sex: Male
  Weight: 70.7 kg

DRUGS (2)
  1. GATIFLOXACIN [Suspect]
     Indication: INFECTION PROPHYLAXIS
     Dosage: 400 MG ONCE ORAL
     Route: 048
     Dates: start: 20040408, end: 20040408
  2. PROPOFOL [Suspect]
     Indication: SEDATION
     Dosage: 10 MG ONCE IV
     Route: 042
     Dates: start: 20040408, end: 20040408

REACTIONS (1)
  - HYPOTENSION [None]
